FAERS Safety Report 23148874 (Version 2)
Quarter: 2023Q4

REPORT INFORMATION
  Report Type: Spontaneous
  Country: JP (occurrence: JP)
  Receive Date: 20231106
  Receipt Date: 20231128
  Transmission Date: 20240110
  Serious: Yes (Hospitalization, Other)
  Sender: FDA-Public Use
  Company Number: JP-TAKEDA-2023TJP010591

PATIENT
  Age: 8 Decade

DRUGS (4)
  1. CABOMETYX [Suspect]
     Active Substance: CABOZANTINIB S-MALATE
     Indication: Product used for unknown indication
     Dosage: 40 MG
     Route: 065
  2. CABOMETYX [Suspect]
     Active Substance: CABOZANTINIB S-MALATE
     Dosage: 20 MG
     Route: 065
  3. OPDIVO [Suspect]
     Active Substance: NIVOLUMAB
     Indication: Product used for unknown indication
     Dosage: UNK
     Route: 065
  4. UNSPECIFIED INGREDIENT [Suspect]
     Active Substance: UNSPECIFIED INGREDIENT
     Indication: Pneumonia bacterial
     Dosage: UNK
     Route: 065

REACTIONS (7)
  - Interstitial lung disease [Recovered/Resolved]
  - Pneumonia bacterial [Unknown]
  - Inappropriate antidiuretic hormone secretion [Unknown]
  - Rash [Recovered/Resolved]
  - Pyrexia [Unknown]
  - Hepatic function abnormal [Unknown]
  - Stomatitis [Unknown]
